FAERS Safety Report 7663324-0 (Version None)
Quarter: 2011Q3

REPORT INFORMATION
  Report Type: 
  Country: None (occurrence: None)
  Receive Date: 20110805
  Receipt Date: 20101104
  Transmission Date: 20111222
  Serious: No
  Sender: FDA-Public Use
  Company Number: US-ABBOTT-09P-163-0615072-00

PATIENT
  Sex: Female
  Weight: 97.61 kg

DRUGS (7)
  1. NIASPAN [Suspect]
     Indication: BLOOD CHOLESTEROL INCREASED
     Dates: start: 20091101
  2. CALCIUM +D [Concomitant]
     Indication: MINERAL SUPPLEMENTATION
  3. BENICAR [Concomitant]
     Indication: HYPERTENSION
  4. LOVASTATIN [Concomitant]
     Indication: BLOOD CHOLESTEROL INCREASED
  5. ACTOS [Concomitant]
     Indication: DIABETES MELLITUS
  6. 800 ULTRA-D VITAMIN [Concomitant]
     Indication: VITAMIN SUPPLEMENTATION
  7. LOVAZA [Concomitant]
     Indication: MINERAL SUPPLEMENTATION

REACTIONS (5)
  - ERYTHEMA [None]
  - PRURITUS [None]
  - FLUSHING [None]
  - BLOOD GLUCOSE INCREASED [None]
  - BURNING SENSATION [None]
